FAERS Safety Report 12787194 (Version 3)
Quarter: 2016Q4

REPORT INFORMATION
  Report Type: Spontaneous
  Country: AT (occurrence: AT)
  Receive Date: 20160927
  Receipt Date: 20161118
  Transmission Date: 20170207
  Serious: Yes (Hospitalization, Other)
  Sender: FDA-Public Use
  Company Number: AT-ABBVIE-16K-009-1736262-00

PATIENT
  Age: 76 Year
  Sex: Male
  Weight: 80 kg

DRUGS (6)
  1. MADOPAR [Concomitant]
     Active Substance: BENSERAZIDE HYDROCHLORIDE\LEVODOPA
     Indication: DEMENTIA
     Route: 048
  2. EXELON [Concomitant]
     Active Substance: RIVASTIGMINE TARTRATE
     Indication: DEMENTIA
     Dates: start: 2015
  3. DUODOPA [Suspect]
     Active Substance: CARBIDOPA\LEVODOPA
     Dosage: MD: 8.3 ML, CR: 2.8 ML/H, ED: 1.3 ML
     Route: 050
     Dates: start: 2015, end: 20160926
  4. DUODOPA [Suspect]
     Active Substance: CARBIDOPA\LEVODOPA
     Indication: PARKINSON^S DISEASE
     Dosage: MD: 8.5 ML??CR: 3.0 ML/H??ED: 1.3 ML
     Route: 050
     Dates: start: 20150506, end: 2015
  5. DUODOPA [Suspect]
     Active Substance: CARBIDOPA\LEVODOPA
     Route: 050
     Dates: start: 20161110
  6. QUETIAPIN [Concomitant]
     Active Substance: QUETIAPINE
     Indication: PSYCHOTIC DISORDER
     Dates: start: 2015

REACTIONS (10)
  - Pyrexia [Unknown]
  - Stoma site hypergranulation [Unknown]
  - Stoma site infection [Unknown]
  - Stoma site erythema [Unknown]
  - Stoma site pain [Unknown]
  - Stoma site inflammation [Unknown]
  - Device dislocation [Unknown]
  - Medical device site warmth [Unknown]
  - Stoma site discharge [Unknown]
  - Stoma site inflammation [Not Recovered/Not Resolved]

NARRATIVE: CASE EVENT DATE: 201609
